FAERS Safety Report 23130129 (Version 1)
Quarter: 2023Q4

REPORT INFORMATION
  Report Type: Spontaneous
  Country: CA (occurrence: CA)
  Receive Date: 20231031
  Receipt Date: 20231031
  Transmission Date: 20240109
  Serious: Yes (Hospitalization)
  Sender: FDA-Public Use
  Company Number: CA-PFIZER INC-202300349357

PATIENT
  Age: 63 Year
  Sex: Male
  Weight: 125 kg

DRUGS (15)
  1. RUXIENCE [Suspect]
     Active Substance: RITUXIMAB-PVVR
     Indication: Glomerulonephritis rapidly progressive
     Dosage: 1 G, EVERY 14 DAYS
     Route: 042
  2. RUXIENCE [Suspect]
     Active Substance: RITUXIMAB-PVVR
     Indication: Antineutrophil cytoplasmic antibody positive
  3. APIXABAN [Concomitant]
     Active Substance: APIXABAN
  4. CANDESARTAN [Concomitant]
     Active Substance: CANDESARTAN
  5. CORTICOSTEROID NOS [Concomitant]
     Active Substance: CORTICOSTEROID NOS
  6. GABAPENTIN [Concomitant]
     Active Substance: GABAPENTIN
  7. RABEPRAZOLE [Concomitant]
     Active Substance: RABEPRAZOLE
  8. POLYETHYLENE GLYCOL 3350 [Concomitant]
     Active Substance: POLYETHYLENE GLYCOL 3350
  9. ROSUVASTATIN [Concomitant]
     Active Substance: ROSUVASTATIN
  10. SENOKOT [Concomitant]
     Active Substance: SENNOSIDES
  11. SEPTRA [Concomitant]
     Active Substance: SULFAMETHOXAZOLE\TRIMETHOPRIM
  12. SERTRALINE [Concomitant]
     Active Substance: SERTRALINE HYDROCHLORIDE
  13. TAMSULOSIN [Concomitant]
     Active Substance: TAMSULOSIN
  14. VITAMIN B12 [Concomitant]
     Active Substance: CYANOCOBALAMIN
  15. ZOPICLONE [Concomitant]
     Active Substance: ZOPICLONE

REACTIONS (3)
  - Diverticulitis [Unknown]
  - Metastatic squamous cell carcinoma [Unknown]
  - Pain in jaw [Unknown]
